FAERS Safety Report 23951916 (Version 1)
Quarter: 2024Q2

REPORT INFORMATION
  Report Type: Spontaneous
  Country: US (occurrence: None)
  Receive Date: 20240607
  Receipt Date: 20240607
  Transmission Date: 20240716
  Serious: Yes (Hospitalization, Other)
  Sender: FDA-Public Use
  Company Number: None

PATIENT
  Age: 63 Year
  Sex: Male

DRUGS (2)
  1. ERIVEDGE [Suspect]
     Active Substance: VISMODEGIB
     Indication: Basal cell carcinoma
     Dosage: OTHER STRENGTH : 150;?FREQUENCY : DAILY;?
     Route: 048
     Dates: start: 20240312
  2. DECADRON [Suspect]
     Active Substance: DEXAMETHASONE

REACTIONS (2)
  - Hyperglycaemia [None]
  - Speech disorder [None]

NARRATIVE: CASE EVENT DATE: 20240508
